FAERS Safety Report 23477291 (Version 1)
Quarter: 2024Q1

REPORT INFORMATION
  Report Type: Spontaneous
  Country: JP (occurrence: JP)
  Receive Date: 20240204
  Receipt Date: 20240204
  Transmission Date: 20240410
  Serious: No
  Sender: FDA-Public Use
  Company Number: JP-TAKEDA-2023TJP009838

PATIENT
  Age: 66 Year
  Sex: Male
  Weight: 56.6 kg

DRUGS (3)
  1. CABOMETYX [Suspect]
     Active Substance: CABOZANTINIB S-MALATE
     Indication: Hepatocellular carcinoma
     Dosage: 40 MG
     Route: 065
     Dates: start: 20221220, end: 20221225
  2. CABOMETYX [Suspect]
     Active Substance: CABOZANTINIB S-MALATE
     Dosage: 20 MG
     Route: 065
     Dates: start: 20221226, end: 20230115
  3. CABOMETYX [Suspect]
     Active Substance: CABOZANTINIB S-MALATE
     Dosage: 10 MG
     Route: 065
     Dates: start: 20230116, end: 20230305

REACTIONS (3)
  - Malaise [Unknown]
  - Decreased appetite [Unknown]
  - Diarrhoea [Unknown]
